FAERS Safety Report 6428367-3 (Version None)
Quarter: 2009Q4

REPORT INFORMATION
  Report Type: 
  Country: None (occurrence: None)
  Receive Date: 20091105
  Receipt Date: 20091005
  Transmission Date: 20100525
  Serious: No
  Sender: FDA-Public Use
  Company Number: US-BAYER-200935241NA

PATIENT
  Sex: Male

DRUGS (1)
  1. NEXAVAR [Suspect]
     Indication: RENAL CANCER
     Route: 048
     Dates: start: 20090901

REACTIONS (2)
  - ABDOMINAL PAIN UPPER [None]
  - PAIN IN EXTREMITY [None]
